FAERS Safety Report 16146571 (Version 2)
Quarter: 2019Q2

REPORT INFORMATION
  Report Type: Spontaneous
  Country: RU (occurrence: RU)
  Receive Date: 20190402
  Receipt Date: 20190418
  Transmission Date: 20190711
  Serious: Yes (Hospitalization, Other)
  Sender: FDA-Public Use
  Company Number: RU-ABBVIE-19S-251-2704724-00

PATIENT
  Age: 51 Year
  Sex: Female
  Weight: 62 kg

DRUGS (20)
  1. TRACRIUM [Concomitant]
     Active Substance: ATRACURIUM BESYLATE
     Indication: GENERAL ANAESTHESIA
     Route: 042
     Dates: start: 20190306, end: 20190306
  2. LYSTHENON [Concomitant]
     Active Substance: SUCCINYLCHOLINE CHLORIDE
     Indication: GENERAL ANAESTHESIA
     Route: 042
     Dates: start: 20190306, end: 20190306
  3. LYSTHENON [Concomitant]
     Active Substance: SUCCINYLCHOLINE CHLORIDE
     Route: 042
     Dates: start: 20190306, end: 20190306
  4. SEVORANE [Suspect]
     Active Substance: SEVOFLURANE
     Indication: GENERAL ANAESTHESIA
     Dosage: 2.5 VOL.PERCENT
     Route: 007
     Dates: start: 20190306, end: 20190306
  5. QUAMATEL [Concomitant]
     Active Substance: FAMOTIDINE
     Indication: PROPHYLAXIS
     Route: 042
     Dates: start: 20190306, end: 20190306
  6. NORMAL SALINE [Concomitant]
     Active Substance: SODIUM CHLORIDE
     Route: 042
     Dates: start: 20190306, end: 20190306
  7. CIPROFLOXACIN. [Concomitant]
     Active Substance: CIPROFLOXACIN
     Indication: INFECTION PROPHYLAXIS
     Route: 042
     Dates: start: 20190306, end: 20190306
  8. RINGERS SOLUTION [Concomitant]
     Active Substance: CALCIUM CHLORIDE\POTASSIUM CHLORIDE\SODIUM CHLORIDE
     Indication: INFUSION
     Route: 042
     Dates: start: 20190306, end: 20190306
  9. CEFTRIAXONE. [Concomitant]
     Active Substance: CEFTRIAXONE
     Route: 042
     Dates: start: 20190306, end: 20190306
  10. QUAMATEL [Concomitant]
     Active Substance: FAMOTIDINE
     Route: 042
     Dates: start: 20190306, end: 20190306
  11. LATRAN [Concomitant]
     Indication: PROPHYLAXIS OF NAUSEA AND VOMITING
     Route: 042
     Dates: start: 20190306, end: 20190306
  12. CEFTRIAXONE. [Concomitant]
     Active Substance: CEFTRIAXONE
     Indication: INFECTION PROPHYLAXIS
     Route: 042
     Dates: start: 20190306, end: 20190306
  13. FENTANYL. [Concomitant]
     Active Substance: FENTANYL
     Indication: GENERAL ANAESTHESIA
     Route: 042
     Dates: start: 20190306, end: 20190306
  14. PROPOFOL. [Concomitant]
     Active Substance: PROPOFOL
     Indication: INDUCTION OF ANAESTHESIA
     Route: 042
     Dates: start: 20190306, end: 20190306
  15. TRACRIUM [Concomitant]
     Active Substance: ATRACURIUM BESYLATE
     Route: 042
     Dates: start: 20190306, end: 20190306
  16. LATRAN [Concomitant]
     Indication: INFECTION PROPHYLAXIS
     Route: 042
     Dates: start: 20190306, end: 20190306
  17. LATRAN [Concomitant]
     Route: 042
     Dates: start: 20190306, end: 20190306
  18. NORMAL SALINE [Concomitant]
     Active Substance: SODIUM CHLORIDE
     Indication: INFUSION
     Route: 042
     Dates: start: 20190306, end: 20190306
  19. CEFTRIAXONE. [Concomitant]
     Active Substance: CEFTRIAXONE
     Indication: INFECTION PROPHYLAXIS
     Route: 042
     Dates: start: 20190306, end: 20190306
  20. DEXAMETHASONE. [Concomitant]
     Active Substance: DEXAMETHASONE
     Indication: INFECTION PROPHYLAXIS
     Route: 042
     Dates: start: 20190306, end: 20190306

REACTIONS (5)
  - Procedural nausea [Recovered/Resolved]
  - Procedural dizziness [Recovered/Resolved]
  - Asthenia [Recovered/Resolved]
  - Suspected product quality issue [Unknown]
  - Post procedural complication [Unknown]

NARRATIVE: CASE EVENT DATE: 2019
